FAERS Safety Report 5200465-1 (Version None)
Quarter: 2007Q1

REPORT INFORMATION
  Report Type: 
  Country: None (occurrence: None)
  Receive Date: 20070105
  Receipt Date: 20061226
  Transmission Date: 20070707
  Serious: Yes (Hospitalization)
  Sender: FDA-Public Use
  Company Number: JP-MERCK-0612USA03466

PATIENT
  Age: 85 Year
  Sex: Male

DRUGS (15)
  1. NOROXIN [Suspect]
     Indication: PHARYNGITIS
     Route: 048
     Dates: start: 20061026
  2. MUCODYNE [Concomitant]
     Route: 048
     Dates: start: 20061026
  3. COUGH, COLD, AND FLU THERAPIES (UNSPECIFIED) [Concomitant]
     Indication: NASOPHARYNGITIS
     Route: 048
     Dates: start: 20061026
  4. MUCOSTA [Concomitant]
     Route: 048
     Dates: start: 20061026
  5. SP TROCHE [Concomitant]
     Route: 048
     Dates: start: 20061026
  6. BLOPRESS [Concomitant]
     Route: 048
     Dates: start: 20020221
  7. DILTIAZEM HCL [Concomitant]
     Route: 048
     Dates: start: 20020221
  8. ALDACTONE [Concomitant]
     Route: 048
     Dates: start: 20020221
  9. AMBROXOL [Concomitant]
     Route: 048
     Dates: start: 20020221
  10. ACTOS [Concomitant]
     Route: 048
     Dates: start: 20060622
  11. CILOSTAZOL [Concomitant]
     Route: 048
     Dates: start: 20020221
  12. MILMAG [Concomitant]
     Route: 048
     Dates: start: 20020221
  13. SIGMART [Concomitant]
     Route: 048
     Dates: start: 20020221
  14. MELBIN [Concomitant]
     Route: 048
     Dates: start: 20020221
  15. VASOLATOR [Concomitant]
     Route: 061
     Dates: start: 20020221

REACTIONS (2)
  - FALL [None]
  - RHABDOMYOLYSIS [None]
